FAERS Safety Report 25948752 (Version 1)
Quarter: 2025Q4

REPORT INFORMATION
  Report Type: Spontaneous
  Country: EU (occurrence: EU)
  Receive Date: 20251022
  Receipt Date: 20251022
  Transmission Date: 20260118
  Serious: Yes (Other)
  Sender: TEVA
  Company Number: None

PATIENT
  Age: 24 Year
  Sex: Male
  Weight: 90 kg

DRUGS (3)
  1. FLUOXETINE [Suspect]
     Active Substance: FLUOXETINE HYDROCHLORIDE
     Indication: Duplicate therapy error
     Dosage: TIME INTERVAL: TOTAL: 2 GELS OF 20 MG IN THE MORNING AND 2 GELS OF 20 MG IN THE EVENING, FLUOXETI...
     Route: 048
     Dates: start: 20250907, end: 20250907
  2. MODAFINIL [Suspect]
     Active Substance: MODAFINIL
     Indication: Duplicate therapy error
     Dosage: TIME INTERVAL: TOTAL: 2 TABLETS OF 100 MG IN THE MORNING AND 2 TABLETS OF 100 MG IN THE EVENING
     Route: 048
     Dates: start: 20250907, end: 20250907
  3. ZYBAN [Suspect]
     Active Substance: BUPROPION HYDROCHLORIDE
     Indication: Duplicate therapy error
     Dosage: TIME INTERVAL: TOTAL: 2 TABLETS IN THE MORNING AND 2 TABLETS IN THE EVENING, ZYBAN L.P. PROLONGED...
     Route: 048
     Dates: start: 20250907, end: 20250907

REACTIONS (5)
  - Hallucination [Recovered/Resolved]
  - Medication error [Recovered/Resolved]
  - Dysarthria [Recovered/Resolved]
  - Nausea [Recovered/Resolved]
  - Tremor [Recovered/Resolved]

NARRATIVE: CASE EVENT DATE: 20250907
